FAERS Safety Report 17247882 (Version 1)
Quarter: 2020Q1

REPORT INFORMATION
  Report Type: Spontaneous
  Country: US (occurrence: US)
  Receive Date: 20200108
  Receipt Date: 20200108
  Transmission Date: 20200409
  Serious: No
  Sender: FDA-Public Use
  Company Number: US-THE RITEDOSE CORPORATION-2019RIT000332

PATIENT

DRUGS (3)
  1. ALBUTEROL SULFATE INHALATION SOLUTION [Suspect]
     Active Substance: ALBUTEROL SULFATE
     Indication: PRODUCT USED FOR UNKNOWN INDICATION
     Dosage: UNK
     Route: 055
  2. TEVA PROAIR INHALER [Concomitant]
     Indication: PRODUCT USED FOR UNKNOWN INDICATION
  3. TEVA QVAR REDIHALER [Concomitant]

REACTIONS (1)
  - Toothache [Unknown]
